FAERS Safety Report 9345601 (Version 2)
Quarter: 2013Q2

REPORT INFORMATION
  Report Type: Spontaneous
  Country: US (occurrence: US)
  Receive Date: 20130613
  Receipt Date: 20130625
  Transmission Date: 20140414
  Serious: No
  Sender: FDA-Public Use
  Company Number: US-009507513-1306USA004584

PATIENT
  Age: 18 Year
  Sex: Female

DRUGS (1)
  1. IMPLANON [Suspect]
     Dosage: UNK
     Route: 059
     Dates: start: 20120601, end: 20130610

REACTIONS (4)
  - Pruritus [Unknown]
  - Device expulsion [Unknown]
  - Device breakage [Unknown]
  - Product quality issue [Unknown]
